FAERS Safety Report 6137778-5 (Version None)
Quarter: 2009Q1

REPORT INFORMATION
  Report Type: 
  Country: None (occurrence: None)
  Receive Date: 20090331
  Receipt Date: 20090318
  Transmission Date: 20090719
  Serious: Yes (Other)
  Sender: FDA-Public Use
  Company Number: US-JNJFOC-20090305256

PATIENT
  Age: 65 Year
  Sex: Female

DRUGS (5)
  1. NEUTROGENA T/GEL THERAPEUTIC SHAMPOO ORIGINAL FORMULA [Suspect]
     Indication: DRUG USE FOR UNKNOWN INDICATION
     Route: 061
  2. ATACAND [Concomitant]
  3. SINGULAIR [Concomitant]
  4. CLARITIN [Concomitant]
  5. NASALCROM [Concomitant]

REACTIONS (3)
  - HAIR TEXTURE ABNORMAL [None]
  - PRODUCT TAMPERING [None]
  - SKIN BURNING SENSATION [None]
